FAERS Safety Report 5016956-2 (Version None)
Quarter: 2006Q2

REPORT INFORMATION
  Report Type: 
  Country: None (occurrence: None)
  Receive Date: 20060526
  Receipt Date: 20060516
  Transmission Date: 20061013
  Serious: Yes (Hospitalization)
  Sender: FDA-Public Use
  Company Number: US200605003321

PATIENT
  Age: 21 Year
  Sex: Male

DRUGS (2)
  1. ZYPREXA [Suspect]
     Dosage: 70 MG
  2. PROZAC [Suspect]

REACTIONS (12)
  - ACCIDENTAL OVERDOSE [None]
  - AKATHISIA [None]
  - BODY TEMPERATURE INCREASED [None]
  - DRUG INTERACTION [None]
  - DRY SKIN [None]
  - DYSTONIA [None]
  - DYSURIA [None]
  - EXTRAPYRAMIDAL DISORDER [None]
  - FLUSHING [None]
  - HALLUCINATION, VISUAL [None]
  - MICTURITION URGENCY [None]
  - SINUS TACHYCARDIA [None]
